FAERS Safety Report 7164306-8 (Version None)
Quarter: 2010Q4

REPORT INFORMATION
  Report Type: 
  Country: None (occurrence: None)
  Receive Date: 20101215
  Receipt Date: 20101206
  Transmission Date: 20110411
  Serious: Yes (Other)
  Sender: FDA-Public Use
  Company Number: PHHY2010US83000

PATIENT
  Sex: Male

DRUGS (1)
  1. VALTURNA [Suspect]
     Route: 048

REACTIONS (2)
  - GLOMERULAR FILTRATION RATE ABNORMAL [None]
  - RENAL DISORDER [None]
